FAERS Safety Report 11457350 (Version 3)
Quarter: 2015Q3

REPORT INFORMATION
  Report Type: Report from Study
  Country: US (occurrence: US)
  Receive Date: 20150904
  Receipt Date: 20150917
  Transmission Date: 20151125
  Serious: Yes (Hospitalization, Other)
  Sender: FDA-Public Use
  Company Number: PHEH2015US016873

PATIENT
  Age: 49 Year
  Sex: Female
  Weight: 74.38 kg

DRUGS (2)
  1. GILENYA [Suspect]
     Active Substance: FINGOLIMOD HYDROCHLORIDE
     Indication: MULTIPLE SCLEROSIS
     Dosage: 0.5 MG, QD
     Route: 048
     Dates: start: 20150619, end: 20150724
  2. REBIF [Suspect]
     Active Substance: INTERFERON BETA-1A
     Indication: MULTIPLE SCLEROSIS
     Dosage: CUMULATIVE 5 DOSES
     Route: 065
     Dates: start: 20150727, end: 20150807

REACTIONS (18)
  - Aspartate aminotransferase increased [Unknown]
  - Myositis [Unknown]
  - Pyrexia [Unknown]
  - Malaise [Unknown]
  - Haemoglobin decreased [Unknown]
  - Neutropenia [Unknown]
  - White blood cell count decreased [Unknown]
  - Anaemia [Unknown]
  - Lymphocyte count decreased [Unknown]
  - Myalgia [Unknown]
  - Multiple sclerosis relapse [Unknown]
  - Alanine aminotransferase increased [Unknown]
  - Platelet count increased [Unknown]
  - Monocyte count increased [Unknown]
  - Headache [Unknown]
  - Infection susceptibility increased [Unknown]
  - Hyperhidrosis [Unknown]
  - Dizziness [Unknown]

NARRATIVE: CASE EVENT DATE: 20150619
